FAERS Safety Report 11215397 (Version 1)
Quarter: 2015Q2

REPORT INFORMATION
  Report Type: Spontaneous
  Country: ES (occurrence: ES)
  Receive Date: 20150624
  Receipt Date: 20150624
  Transmission Date: 20150821
  Serious: Yes (Other)
  Sender: FDA-Public Use
  Company Number: ES-ACTAVIS-2015-11979

PATIENT
  Age: 64 Year
  Sex: Female

DRUGS (1)
  1. LEVOFLOXACIN (UNKNOWN) [Suspect]
     Active Substance: LEVOFLOXACIN
     Indication: BETA HAEMOLYTIC STREPTOCOCCAL INFECTION
     Dosage: UNK
     Route: 065

REACTIONS (2)
  - Face oedema [Recovered/Resolved]
  - Hypersensitivity [Recovered/Resolved]
